FAERS Safety Report 16831337 (Version 1)
Quarter: 2019Q3

REPORT INFORMATION
  Report Type: Spontaneous
  Country: US (occurrence: US)
  Receive Date: 20190730
  Receipt Date: 20190730
  Transmission Date: 20191005
  Serious: Yes (Other)
  Sender: FDA-Public Use
  Company Number: None

PATIENT
  Age: 51 Year
  Sex: Female
  Weight: 44.45 kg

DRUGS (10)
  1. AREDS [Concomitant]
     Active Substance: MINERALS\VITAMINS
  2. GARLIC. [Concomitant]
     Active Substance: GARLIC
  3. BIOTIN [Concomitant]
     Active Substance: BIOTIN
  4. FISH OIL [Concomitant]
     Active Substance: FISH OIL
  5. VITAMIN C [Concomitant]
     Active Substance: ASCORBIC ACID
  6. TRAZODONE [Concomitant]
     Active Substance: TRAZODONE HYDROCHLORIDE
  7. ADVIL [Concomitant]
     Active Substance: IBUPROFEN
  8. BYSTOLIC [Suspect]
     Active Substance: NEBIVOLOL HYDROCHLORIDE
     Indication: HYPERTENSION
     Dosage: ?          QUANTITY:1 DF DOSAGE FORM;?
     Route: 048
     Dates: start: 20190612, end: 20190729
  9. TYLENOL [Concomitant]
     Active Substance: ACETAMINOPHEN
  10. CENTRUM VITAMINS [Concomitant]

REACTIONS (9)
  - Hypotension [None]
  - Presyncope [None]
  - Hemianaesthesia [None]
  - Fatigue [None]
  - Headache [None]
  - Diarrhoea [None]
  - Dizziness [None]
  - Lethargy [None]
  - Chest discomfort [None]

NARRATIVE: CASE EVENT DATE: 20190726
